FAERS Safety Report 10697407 (Version 3)
Quarter: 2015Q1

REPORT INFORMATION
  Report Type: Spontaneous
  Country: AU (occurrence: AU)
  Receive Date: 20150108
  Receipt Date: 20150128
  Transmission Date: 20150721
  Serious: Yes (Hospitalization, Other)
  Sender: FDA-Public Use
  Company Number: AU-ASTRAZENECA-2015SE00910

PATIENT
  Age: 78 Year
  Sex: Male

DRUGS (4)
  1. ZOLADEX [Suspect]
     Active Substance: GOSERELIN ACETATE
     Route: 058
  2. ZOLADEX [Suspect]
     Active Substance: GOSERELIN ACETATE
     Route: 058
     Dates: start: 1999
  3. COSUDEX [Suspect]
     Active Substance: BICALUTAMIDE
     Dosage: 1 COURSE OF ZOLACOS
     Route: 048
     Dates: start: 2013
  4. COSUDEX [Suspect]
     Active Substance: BICALUTAMIDE
     Route: 048
     Dates: start: 2015

REACTIONS (7)
  - Pleural mesothelioma malignant [Not Recovered/Not Resolved]
  - Intentional product misuse [Unknown]
  - Cough [Not Recovered/Not Resolved]
  - Malignant neoplasm progression [Unknown]
  - Metastases to urinary tract [Not Recovered/Not Resolved]
  - Metastases to lung [Unknown]
  - Pleural effusion [Not Recovered/Not Resolved]

NARRATIVE: CASE EVENT DATE: 2011
